FAERS Safety Report 9186981 (Version 1)
Quarter: 2013Q1

REPORT INFORMATION
  Report Type: Spontaneous
  Country: KR (occurrence: KR)
  Receive Date: 20130325
  Receipt Date: 20130325
  Transmission Date: 20140127
  Serious: Yes (Other)
  Sender: FDA-Public Use
  Company Number: KR-RANBAXY-2013RR-66347

PATIENT
  Age: 59 Year
  Sex: Male

DRUGS (2)
  1. CLARITHROMYCIN [Suspect]
     Indication: SINUSITIS
     Dosage: 500 MG EVERY 12 HOURS
     Route: 065
  2. COLCHICINE [Interacting]
     Indication: BEHCET^S SYNDROME
     Dosage: 0.6 MG EVERY 12 HOURS
     Route: 065

REACTIONS (3)
  - Rhabdomyolysis [Recovered/Resolved]
  - Hepatic enzyme increased [Unknown]
  - Drug interaction [Recovered/Resolved]
